FAERS Safety Report 6253821-7 (Version None)
Quarter: 2009Q3

REPORT INFORMATION
  Report Type: 
  Country: None (occurrence: None)
  Receive Date: 20090702
  Receipt Date: 20090622
  Transmission Date: 20100115
  Serious: Yes (Other)
  Sender: FDA-Public Use
  Company Number: GB-RANBAXY-2009RR-25240

PATIENT
  Age: 72 Year
  Sex: Female

DRUGS (9)
  1. SIMVASTATIN [Suspect]
     Indication: BLOOD CHOLESTEROL
     Dosage: 20 MG, UNK
     Route: 048
     Dates: start: 20090311, end: 20090312
  2. CLARITHROMYCIN [Concomitant]
     Dosage: 50 MG, BID
     Dates: start: 20090219
  3. ACETAMINOPHEN W/ CODEINE [Concomitant]
     Dosage: UNK
     Dates: start: 20090107
  4. FUROSEMIDE INTENSOL [Concomitant]
     Indication: FLUID RETENTION
     Dosage: 40 MG, QOD
     Dates: start: 20061004
  5. LEVOTHYROXINE SODIUM [Concomitant]
     Indication: HYPOTHYROIDISM
     Dosage: 50 UG, QD
     Route: 048
     Dates: start: 20050825
  6. PARACETAMOL [Concomitant]
     Indication: PAIN
     Dosage: 1 G, PRN
     Route: 048
     Dates: start: 20050110
  7. ALBUTEROL [Concomitant]
     Route: 055
  8. TIOTROPIUM BROMIDE [Concomitant]
     Route: 055
  9. WARFARIN [Concomitant]
     Indication: ATRIAL FIBRILLATION
     Dosage: UNK
     Route: 048
     Dates: start: 20040826

REACTIONS (1)
  - GOUT [None]
